FAERS Safety Report 7047561-4 (Version None)
Quarter: 2010Q4

REPORT INFORMATION
  Report Type: 
  Country: None (occurrence: None)
  Receive Date: 20101015
  Receipt Date: 20101008
  Transmission Date: 20110411
  Serious: Yes (Other)
  Sender: FDA-Public Use
  Company Number: AU-PFIZER INC-2010128956

PATIENT
  Age: 64 Year
  Sex: Male

DRUGS (4)
  1. CHAMPIX [Suspect]
     Indication: TOBACCO USER
     Dosage: UNK
     Dates: start: 20100901, end: 20100914
  2. LIPITOR [Concomitant]
     Dosage: UNK
  3. PLAVIX [Concomitant]
     Dosage: UNK
  4. TRITACE [Concomitant]
     Dosage: UNK

REACTIONS (6)
  - ANGIOEDEMA [None]
  - DYSPEPSIA [None]
  - HEADACHE [None]
  - MEMORY IMPAIRMENT [None]
  - NAUSEA [None]
  - URTICARIA [None]
